FAERS Safety Report 7402745-8 (Version None)
Quarter: 2011Q2

REPORT INFORMATION
  Report Type: 
  Country: None (occurrence: None)
  Receive Date: 20110408
  Receipt Date: 20110330
  Transmission Date: 20111010
  Serious: Yes (Hospitalization)
  Sender: FDA-Public Use
  Company Number: TW-ROCHE-767922

PATIENT
  Age: 64 Year
  Sex: Male

DRUGS (2)
  1. MIRCERA [Suspect]
     Dosage: QM, DOSE INCREASED
     Route: 058
     Dates: start: 20110321
  2. MIRCERA [Suspect]
     Dosage: QM
     Route: 058
     Dates: start: 20100401

REACTIONS (1)
  - VITH NERVE PARALYSIS [None]
